FAERS Safety Report 14311081 (Version 1)
Quarter: 2017Q4

REPORT INFORMATION
  Report Type: Spontaneous
  Country: US (occurrence: US)
  Receive Date: 20171221
  Receipt Date: 20171221
  Transmission Date: 20180321
  Serious: Yes (Hospitalization, Other)
  Sender: FDA-Public Use
  Company Number: US-SANOFI-AVENTIS-2010SA027013

PATIENT
  Age: 93 Year
  Sex: Female
  Weight: 61 kg

DRUGS (6)
  1. PLAVIX [Suspect]
     Active Substance: CLOPIDOGREL BISULFATE
     Indication: CEREBROVASCULAR ACCIDENT
     Route: 048
     Dates: start: 2002, end: 20090307
  2. METFORMIN/GLIPIZIDE [Concomitant]
     Indication: DIABETES MELLITUS
     Dosage: 2.5/500MG
     Dates: end: 20090307
  3. LISINOPRIL AND HYDROCHLOROTHIAZIDE [Concomitant]
     Active Substance: HYDROCHLOROTHIAZIDE\LISINOPRIL
     Indication: OEDEMA
     Dosage: 10-12.5MG TABLET
     Dates: start: 20060626, end: 20090307
  4. HYOSCYAMINE. [Concomitant]
     Active Substance: HYOSCYAMINE
     Indication: FLATULENCE
     Dates: end: 20090307
  5. SULINDAC. [Concomitant]
     Active Substance: SULINDAC
     Indication: ARTHRITIS
     Dates: end: 20090307
  6. ELDERTONIC [Concomitant]
     Indication: INCREASED APPETITE
     Dosage: 1 TABLESPOON DAILY
     Dates: start: 1980, end: 20090307

REACTIONS (10)
  - Incontinence [Not Recovered/Not Resolved]
  - Aspiration [Not Recovered/Not Resolved]
  - Fall [Not Recovered/Not Resolved]
  - Myocardial infarction [Unknown]
  - Speech disorder [Not Recovered/Not Resolved]
  - Asthenia [Not Recovered/Not Resolved]
  - Feeding disorder [Not Recovered/Not Resolved]
  - Mobility decreased [Not Recovered/Not Resolved]
  - Cerebrovascular accident [Not Recovered/Not Resolved]
  - Gait inability [Not Recovered/Not Resolved]

NARRATIVE: CASE EVENT DATE: 20090306
